FAERS Safety Report 23836214 (Version 1)
Quarter: 2024Q2

REPORT INFORMATION
  Report Type: Spontaneous
  Country: DE (occurrence: DE)
  Receive Date: 20240509
  Receipt Date: 20240509
  Transmission Date: 20240715
  Serious: Yes (Hospitalization, Other)
  Sender: FDA-Public Use
  Company Number: None

PATIENT
  Age: 23 Year
  Sex: Female
  Weight: 60 kg

DRUGS (8)
  1. DOXYCYCLINE HYCLATE [Suspect]
     Active Substance: DOXYCYCLINE HYCLATE
     Dosage: 1000 MG, ONCE
     Route: 048
     Dates: start: 20060220, end: 20060220
  2. CIPROFLOXACIN [Suspect]
     Active Substance: CIPROFLOXACIN
     Dosage: 5000 MG, ONCE
     Route: 048
     Dates: start: 20060220, end: 20060220
  3. AMPHOTERICIN B\TETRACYCLINE [Suspect]
     Active Substance: AMPHOTERICIN B\TETRACYCLINE
     Indication: Suicide attempt
     Dosage: 2500 MG, ONCE
     Route: 048
     Dates: start: 20060220, end: 20060220
  4. CAFFEINE [Suspect]
     Active Substance: CAFFEINE
     Indication: Suicide attempt
     Dosage: 800 MG, ONCE
     Route: 048
     Dates: start: 20060220, end: 20060220
  5. ZOPICLONE [Suspect]
     Active Substance: ZOPICLONE
     Indication: Suicide attempt
     Dosage: ONCE
     Route: 048
     Dates: start: 20060220, end: 20060220
  6. ALCOHOL [Suspect]
     Active Substance: ALCOHOL
     Indication: Suicide attempt
     Route: 048
     Dates: start: 20060220, end: 20060220
  7. CLARITHROMYCIN [Suspect]
     Active Substance: CLARITHROMYCIN
     Indication: Suicide attempt
     Dosage: 3000 MG, ONCE
     Route: 048
     Dates: start: 20060220, end: 20060220
  8. DICLOFENAC [Suspect]
     Active Substance: DICLOFENAC
     Indication: Suicide attempt
     Dosage: 750 MG, ONCE
     Route: 048
     Dates: start: 20060220, end: 20060220

REACTIONS (3)
  - Suicide attempt [Unknown]
  - Somnolence [Unknown]
  - Off label use [Unknown]

NARRATIVE: CASE EVENT DATE: 20060220
